FAERS Safety Report 18137307 (Version 5)
Quarter: 2023Q1

REPORT INFORMATION
  Report Type: Report from Study
  Country: US (occurrence: None)
  Receive Date: 20200811
  Receipt Date: 20230110
  Transmission Date: 20230418
  Serious: Yes (Death, Hospitalization, Other)
  Sender: FDA-Public Use
  Company Number: US-ROCHE-2541673

PATIENT
  Age: 71 Year
  Sex: Male
  Weight: 82.2 kg

DRUGS (3)
  1. ATEZOLIZUMAB [Suspect]
     Active Substance: ATEZOLIZUMAB
     Indication: Pleural mesothelioma malignant
     Dosage: LAST ADMINISTERED DATE WAS ON 27/JAN/2020
     Route: 041
     Dates: start: 20200103
  2. CISPLATIN [Suspect]
     Active Substance: CISPLATIN
     Indication: Pleural mesothelioma malignant
     Dosage: LAST ADMINISTERED DATE WAS ON 27/JAN/2020
     Route: 042
     Dates: start: 20200103
  3. PEMETREXED [Suspect]
     Active Substance: PEMETREXED
     Indication: Pleural mesothelioma malignant
     Dosage: LAST ADMINISTERED DATE WAS ON 27/JAN/2020
     Route: 042
     Dates: start: 20200103

REACTIONS (3)
  - Death [Fatal]
  - Gastritis [Recovered/Resolved]
  - Neutrophil count decreased [Recovered/Resolved]

NARRATIVE: CASE EVENT DATE: 20200109
